FAERS Safety Report 14619854 (Version 1)
Quarter: 2018Q1

REPORT INFORMATION
  Report Type: Spontaneous
  Country: AT (occurrence: AT)
  Receive Date: 20180309
  Receipt Date: 20180309
  Transmission Date: 20180509
  Serious: Yes (Hospitalization)
  Sender: FDA-Public Use
  Company Number: AT-TEVA-2018-AT-866318

PATIENT
  Age: 45 Year
  Sex: Female

DRUGS (3)
  1. ACICLOVIR [Suspect]
     Active Substance: ACYCLOVIR
     Indication: HERPES SIMPLEX ENCEPHALITIS
     Dosage: 750MG THREE TIME A DAY
     Route: 042
  2. FOSCARNET [Concomitant]
     Active Substance: FOSCARNET
     Indication: HERPES SIMPLEX ENCEPHALITIS
     Dosage: 60MG THREE TIME A DAY
     Route: 065
  3. ACICLOVIR [Suspect]
     Active Substance: ACYCLOVIR
     Indication: HERPES SIMPLEX ENCEPHALITIS
     Dosage: 1000MG THREE TIME A DAY
     Route: 042

REACTIONS (1)
  - Pathogen resistance [Unknown]
